FAERS Safety Report 9136337 (Version 1)
Quarter: 2013Q1

REPORT INFORMATION
  Report Type: Spontaneous
  Country: US (occurrence: US)
  Receive Date: 20130219
  Receipt Date: 20130219
  Transmission Date: 20140127
  Serious: No
  Sender: FDA-Public Use
  Company Number: US-BRISTOL-MYERS SQUIBB COMPANY-16518250

PATIENT
  Age: 60 Year
  Sex: Female

DRUGS (1)
  1. ABATACEPT SUBQ INJECTION 125MG/ML [Suspect]
     Dosage: CHANGED TO SUBCUTANEOUS:125MG/ML
     Route: 042

REACTIONS (2)
  - Pyrexia [Recovered/Resolved]
  - Malaise [Unknown]
